FAERS Safety Report 17811511 (Version 5)
Quarter: 2022Q2

REPORT INFORMATION
  Report Type: Spontaneous
  Country: US (occurrence: US)
  Receive Date: 20200521
  Receipt Date: 20220425
  Transmission Date: 20220720
  Serious: Yes (Hospitalization, Other)
  Sender: FDA-Public Use
  Company Number: US-PFIZER INC-2020201280

PATIENT
  Age: 83 Year

DRUGS (1)
  1. PREMPRO [Suspect]
     Active Substance: ESTROGENS, CONJUGATED\MEDROXYPROGESTERONE ACETATE
     Dosage: UNK

REACTIONS (9)
  - Cerebrovascular accident [Unknown]
  - Blindness [Unknown]
  - Diabetes mellitus [Unknown]
  - Peripheral swelling [Unknown]
  - Oedema [Unknown]
  - Middle insomnia [Unknown]
  - Dyspnoea [Unknown]
  - Hot flush [Unknown]
  - Hyperhidrosis [Unknown]
